FAERS Safety Report 7945031-X (Version None)
Quarter: 2011Q4

REPORT INFORMATION
  Report Type: 
  Country: None (occurrence: None)
  Receive Date: 20111129
  Receipt Date: 20110615
  Transmission Date: 20120403
  Serious: No
  Sender: FDA-Public Use
  Company Number: US-MYLANLABS-2011S1012566

PATIENT
  Age: 51 Year
  Sex: Female
  Weight: 113.4 kg

DRUGS (7)
  1. PREVACID [Concomitant]
     Indication: GASTROOESOPHAGEAL REFLUX DISEASE
     Route: 048
  2. LOVAZA [Concomitant]
     Indication: BLOOD CHOLESTEROL INCREASED
     Route: 048
     Dates: start: 20090101
  3. MAGNESIUM /01486807/ [Concomitant]
     Indication: PROPHYLAXIS
     Route: 048
  4. ALLOPURINOL TAB [Suspect]
     Indication: BLOOD URIC ACID INCREASED
     Route: 048
     Dates: start: 20110611
  5. LOTENSIN HCT [Concomitant]
     Indication: BLOOD PRESSURE INCREASED
     Dosage: 20MG/25MG
     Route: 048
  6. ZOCOR [Concomitant]
     Indication: BLOOD CHOLESTEROL INCREASED
     Route: 048
  7. ASPIRIN [Concomitant]
     Indication: PROPHYLAXIS
     Route: 048

REACTIONS (1)
  - OEDEMA PERIPHERAL [None]
